FAERS Safety Report 7207883-0 (Version None)
Quarter: 2011Q1

REPORT INFORMATION
  Report Type: 
  Country: None (occurrence: None)
  Receive Date: 20110104
  Receipt Date: 20101221
  Transmission Date: 20110831
  Serious: Yes (Death)
  Sender: FDA-Public Use
  Company Number: US-JNJFOC-20090702003

PATIENT
  Weight: 0.45 kg

DRUGS (2)
  1. ACETAMINOPHEN [Suspect]
     Indication: ILL-DEFINED DISORDER
  2. ACETAMINOPHEN [Suspect]

REACTIONS (2)
  - DEATH [None]
  - SMALL FOR DATES BABY [None]
